FAERS Safety Report 23931730 (Version 1)
Quarter: 2024Q2

REPORT INFORMATION
  Report Type: Spontaneous
  Country: US (occurrence: US)
  Receive Date: 20240603
  Receipt Date: 20240603
  Transmission Date: 20240716
  Serious: No
  Sender: FDA-Public Use
  Company Number: US-SANDOZ-SDZ2024US053890

PATIENT
  Sex: Female
  Weight: 63.492 kg

DRUGS (1)
  1. CIPROFLOXACIN [Suspect]
     Active Substance: CIPROFLOXACIN
     Indication: Urinary tract infection
     Dosage: 500 MG, BID
     Route: 065

REACTIONS (4)
  - Lethargy [Unknown]
  - Flank pain [Unknown]
  - Back pain [Unknown]
  - Abdominal pain [Unknown]
